FAERS Safety Report 20435043 (Version 3)
Quarter: 2022Q1

REPORT INFORMATION
  Report Type: Spontaneous
  Country: FR (occurrence: FR)
  Receive Date: 20220206
  Receipt Date: 20220302
  Transmission Date: 20220423
  Serious: Yes (Other)
  Sender: FDA-Public Use
  Company Number: FR-SANOFI-00948276

PATIENT
  Age: 65 Year
  Sex: Female

DRUGS (1)
  1. DUPIXENT [Suspect]
     Active Substance: DUPILUMAB
     Indication: Product used for unknown indication
     Dosage: 300 MG, Q15D

REACTIONS (6)
  - Leukaemia [Unknown]
  - Hyperleukocytosis [Unknown]
  - Lymphocytosis [Unknown]
  - T-cell lymphoma [Unknown]
  - Cutaneous T-cell lymphoma [Unknown]
  - Product use issue [Unknown]
